FAERS Safety Report 25471666 (Version 2)
Quarter: 2025Q2

REPORT INFORMATION
  Report Type: Spontaneous
  Country: US (occurrence: US)
  Receive Date: 20250624
  Receipt Date: 20250630
  Transmission Date: 20250717
  Serious: No
  Sender: ROCHE
  Company Number: US-ROCHE-10000317150

PATIENT
  Age: 58 Year
  Sex: Female

DRUGS (1)
  1. XOLAIR [Suspect]
     Active Substance: OMALIZUMAB
     Indication: Product used for unknown indication
     Route: 065
     Dates: start: 202409

REACTIONS (9)
  - Myalgia [Not Recovered/Not Resolved]
  - Fatigue [Not Recovered/Not Resolved]
  - Hypotension [Not Recovered/Not Resolved]
  - Arthralgia [Not Recovered/Not Resolved]
  - Mast cell activation syndrome [Unknown]
  - Brain fog [Unknown]
  - Malaise [Unknown]
  - Bone pain [Unknown]
  - Hereditary alpha tryptasaemia [Unknown]

NARRATIVE: CASE EVENT DATE: 20240901
